FAERS Safety Report 11890418 (Version 1)
Quarter: 2016Q1

REPORT INFORMATION
  Report Type: Spontaneous
  Country: KP (occurrence: KP)
  Receive Date: 20160105
  Receipt Date: 20160105
  Transmission Date: 20160526
  Serious: Yes (Other)
  Sender: FDA-Public Use
  Company Number: KP-ALLERGAN-1600014US

PATIENT
  Age: 2 Month
  Sex: Male
  Weight: 2 kg

DRUGS (2)
  1. TROPICAMIDE. [Suspect]
     Active Substance: TROPICAMIDE
     Indication: MYDRIASIS
     Dosage: 2 GTT, UNK
     Route: 047
  2. PHENYLEPHRINE [Suspect]
     Active Substance: PHENYLEPHRINE\PHENYLEPHRINE HYDROCHLORIDE
     Indication: MYDRIASIS
     Dosage: 2 GTT, UNK
     Route: 047

REACTIONS (1)
  - Bronchospasm [Recovered/Resolved]
